FAERS Safety Report 6851026-X (Version None)
Quarter: 2010Q3

REPORT INFORMATION
  Report Type: 
  Country: None (occurrence: None)
  Receive Date: 20100716
  Receipt Date: 20080514
  Transmission Date: 20110219
  Serious: No
  Sender: FDA-Public Use
  Company Number: US-PFIZER INC-2007090765

PATIENT
  Sex: Female
  Weight: 77.3 kg

DRUGS (10)
  1. CHANTIX [Suspect]
     Indication: SMOKING CESSATION THERAPY
     Route: 048
     Dates: start: 20071001, end: 20070101
  2. XOPENEX [Suspect]
     Route: 055
  3. IPRATROPIUM BROMIDE [Suspect]
     Route: 055
  4. FUROSEMIDE [Concomitant]
  5. LISINOPRIL [Concomitant]
  6. ACETYLSALICYLIC ACID [Concomitant]
  7. XANAX [Concomitant]
  8. MICRO-K [Concomitant]
  9. ALBUTEROL [Concomitant]
     Route: 055
  10. NEXIUM [Concomitant]
     Indication: ULCER

REACTIONS (3)
  - NAUSEA [None]
  - PRESYNCOPE [None]
  - TREMOR [None]
